FAERS Safety Report 4416954-3 (Version None)
Quarter: 2004Q3

REPORT INFORMATION
  Report Type: 
  Country: None (occurrence: None)
  Receive Date: 20040806
  Receipt Date: 20040722
  Transmission Date: 20050211
  Serious: Yes (Death, Life-Threatening, Other)
  Sender: FDA-Public Use
  Company Number: PHBS2004JP09705

PATIENT
  Age: 7 Year
  Sex: Female
  Weight: 17 kg

DRUGS (6)
  1. SANDIMMUNE [Suspect]
     Indication: BONE MARROW TRANSPLANT
     Dosage: 2 MG/D
     Dates: start: 20030319, end: 20030101
  2. STEROIDS NOS [Suspect]
     Indication: BONE MARROW TRANSPLANT
     Dosage: 15 MG/D
     Route: 048
     Dates: start: 20030422
  3. STEROIDS NOS [Suspect]
     Dosage: 25 MG/D
     Route: 048
     Dates: end: 20030527
  4. NEORAL [Suspect]
     Indication: BONE MARROW TRANSPLANT
     Dosage: 100 MG/D
     Route: 048
     Dates: start: 20030101, end: 20030619
  5. METHOTREXATE [Concomitant]
     Indication: BONE MARROW TRANSPLANT
     Route: 042
     Dates: start: 20030321
  6. METHOTREXATE [Concomitant]
     Dosage: 7.6 MG/D
     Route: 042
     Dates: end: 20030326

REACTIONS (8)
  - BLOOD CREATININE INCREASED [None]
  - CYSTITIS HAEMORRHAGIC [None]
  - DYSURIA [None]
  - HAEMATURIA [None]
  - POLYURIA [None]
  - PROTEIN URINE PRESENT [None]
  - PULMONARY OEDEMA [None]
  - RENAL FAILURE ACUTE [None]
